FAERS Safety Report 4889665-8 (Version None)
Quarter: 2006Q1

REPORT INFORMATION
  Report Type: 
  Country: None (occurrence: None)
  Receive Date: 20060120
  Receipt Date: 20060105
  Transmission Date: 20060701
  Serious: Yes (Hospitalization, Other)
  Sender: FDA-Public Use
  Company Number: 200510802

PATIENT
  Age: 49 Year
  Sex: Female
  Weight: 47.6277 kg

DRUGS (6)
  1. BOTOX COSMETIC [Suspect]
     Indication: SKIN WRINKLING
     Dates: start: 20030301
  2. BOTOX COSMETIC [Suspect]
     Indication: SKIN WRINKLING
     Dates: start: 20030601
  3. BOTOX COSMETIC [Suspect]
     Indication: SKIN WRINKLING
     Dates: start: 20031001
  4. BOTOX COSMETIC [Suspect]
     Indication: SKIN WRINKLING
     Dates: start: 20031201
  5. PREMARIN [Concomitant]
  6. ATIVAN [Concomitant]

REACTIONS (27)
  - ASTHENIA [None]
  - BOTULISM [None]
  - CHEST PAIN [None]
  - DIZZINESS [None]
  - DRY MOUTH [None]
  - DYSKINESIA [None]
  - HEAD INJURY [None]
  - HEART RATE DECREASED [None]
  - HEART RATE IRREGULAR [None]
  - HYPOAESTHESIA [None]
  - INFLAMMATION [None]
  - MADAROSIS [None]
  - MUSCLE SPASMS [None]
  - NAUSEA [None]
  - ONYCHOMADESIS [None]
  - ORTHOSTATIC HYPOTENSION [None]
  - PAIN [None]
  - PALPITATIONS [None]
  - PARAESTHESIA ORAL [None]
  - POLLAKIURIA [None]
  - RASH [None]
  - SENSATION OF FOREIGN BODY [None]
  - SINUSITIS [None]
  - STOMATITIS [None]
  - TENSION HEADACHE [None]
  - TOOTH DISORDER [None]
  - URINE ANALYSIS ABNORMAL [None]
